FAERS Safety Report 9234102 (Version 1)
Quarter: 2013Q2

REPORT INFORMATION
  Report Type: Spontaneous
  Country: US (occurrence: US)
  Receive Date: 20130416
  Receipt Date: 20130416
  Transmission Date: 20140414
  Serious: Yes (Hospitalization, Other)
  Sender: FDA-Public Use
  Company Number: US-ELI_LILLY_AND_COMPANY-US201304002747

PATIENT
  Age: 82 Year
  Sex: Male

DRUGS (3)
  1. HUMULIN NPH [Suspect]
     Indication: TYPE 2 DIABETES MELLITUS
     Dosage: 5 U, QD
     Dates: start: 2010
  2. LASIX [Concomitant]
  3. LISINOPRIL [Concomitant]

REACTIONS (1)
  - Cardiac failure congestive [Unknown]
